FAERS Safety Report 9138067 (Version 1)
Quarter: 2013Q1

REPORT INFORMATION
  Report Type: Spontaneous
  Country: US (occurrence: US)
  Receive Date: 20130304
  Receipt Date: 20130304
  Transmission Date: 20140127
  Serious: Yes (Hospitalization, Congenital Anomaly, Other)
  Sender: FDA-Public Use
  Company Number: US-PFIZER INC-2013074086

PATIENT
  Sex: Female
  Weight: 3 kg

DRUGS (13)
  1. ZOLOFT [Suspect]
     Indication: DEPRESSION
     Dosage: UNK
     Route: 064
     Dates: start: 200302
  2. ZOLOFT [Suspect]
     Dosage: 50 MG, UNK
     Route: 064
     Dates: start: 20040415
  3. ZOLOFT [Suspect]
     Dosage: 100 MG, 2X/DAY
     Route: 064
     Dates: start: 20041007
  4. ZOLOFT [Suspect]
     Dosage: 100 MG, 1X/DAY
     Route: 064
     Dates: start: 200508
  5. PRENATAL VITAMINS [Concomitant]
     Dosage: UNK
     Route: 064
  6. BUSPAR [Concomitant]
     Dosage: 15 MG, 2X/DAY
     Route: 064
  7. BUSPAR [Concomitant]
     Dosage: 30 MG, 2X/DAY
     Route: 064
     Dates: start: 20050402
  8. CELEXA [Concomitant]
     Dosage: UNK
     Route: 064
  9. APRI [Concomitant]
     Dosage: UNK
     Route: 064
  10. SUDAFED [Concomitant]
     Dosage: UNK
     Route: 064
  11. ATIVAN [Concomitant]
     Dosage: UNK
     Route: 064
  12. TYLENOL [Concomitant]
     Dosage: UNK
     Route: 064
  13. IBUPROFEN [Concomitant]
     Dosage: UNK
     Route: 064

REACTIONS (27)
  - Maternal exposure timing unspecified [Unknown]
  - Cleft lip [Not Recovered/Not Resolved]
  - Cleft palate [Not Recovered/Not Resolved]
  - Otitis media [Not Recovered/Not Resolved]
  - Haemangioma of skin [Not Recovered/Not Resolved]
  - Haemangioma of skin [Unknown]
  - Syndactyly [Unknown]
  - Dysmorphism [Unknown]
  - Haemangioma of skin [Not Recovered/Not Resolved]
  - Feeding disorder neonatal [Unknown]
  - Poor weight gain neonatal [Unknown]
  - Congenital anomaly [Unknown]
  - Conductive deafness [Unknown]
  - Cellulitis [Unknown]
  - Adjustment disorder [Unknown]
  - Pyrexia [Unknown]
  - Diarrhoea [Unknown]
  - Ear infection [Unknown]
  - Nasal congestion [Unknown]
  - Vomiting [Unknown]
  - Velopharyngeal incompetence [Unknown]
  - Gastrooesophageal reflux disease [Recovering/Resolving]
  - Sinusitis [Unknown]
  - Speech disorder [Unknown]
  - Tooth disorder [Unknown]
  - Wheezing [Unknown]
  - Anxiety [Unknown]
